FAERS Safety Report 5059135-5 (Version None)
Quarter: 2006Q3

REPORT INFORMATION
  Report Type: 
  Country: None (occurrence: None)
  Receive Date: 20060718
  Receipt Date: 20060713
  Transmission Date: 20061208
  Serious: Yes (Other)
  Sender: FDA-Public Use
  Company Number: S06-USA-02724-01

PATIENT
  Age: 50 Year
  Sex: Female

DRUGS (4)
  1. LEXAPRO [Suspect]
     Indication: ANXIETY
     Dosage: 20 MG BID PO
     Route: 048
     Dates: start: 20060201
  2. LEXAPRO [Suspect]
     Indication: DEPRESSION
     Dosage: 20 MG BID PO
     Route: 048
     Dates: start: 20060201
  3. GLUCOPHAGE [Concomitant]
  4. INDERAL [Concomitant]

REACTIONS (2)
  - LOSS OF EMPLOYMENT [None]
  - OBSESSIVE-COMPULSIVE DISORDER [None]
